FAERS Safety Report 16921394 (Version 3)
Quarter: 2019Q4

REPORT INFORMATION
  Report Type: Spontaneous
  Country: BR (occurrence: BR)
  Receive Date: 20191015
  Receipt Date: 20191226
  Transmission Date: 20200122
  Serious: Yes (Hospitalization, Other)
  Sender: FDA-Public Use
  Company Number: BR-SA-2019SA272282

PATIENT
  Sex: Male
  Weight: 74 kg

DRUGS (4)
  1. GABANEURIN [Concomitant]
     Active Substance: GABAPENTIN
     Indication: DIABETIC NEUROPATHY
     Dosage: UNK
     Route: 065
  2. BENZATHINE BENZYLPENICILLIN [Suspect]
     Active Substance: PENICILLIN G BENZATHINE
     Indication: TYPE 1 DIABETES MELLITUS
     Dosage: UNK
     Route: 065
  3. LANTUS [Suspect]
     Active Substance: INSULIN GLARGINE
     Indication: TYPE 1 DIABETES MELLITUS
     Dosage: 40 IU AT MORNING AND 40 IU AT AFTERNOON, BID
     Route: 065
  4. NOVORAPID [Concomitant]
     Active Substance: INSULIN ASPART
     Indication: TYPE 1 DIABETES MELLITUS
     Dosage: UNK
     Route: 065

REACTIONS (11)
  - Injury [Unknown]
  - Inappropriate schedule of product administration [Unknown]
  - Diabetic neuropathy [Unknown]
  - Fall [Unknown]
  - Muscular weakness [Unknown]
  - Spinal cord infection [Not Recovered/Not Resolved]
  - Anaphylactic shock [Recovered/Resolved]
  - Tracheal stenosis [Recovered/Resolved]
  - Pain [Unknown]
  - Hyperaesthesia [Unknown]
  - Product storage error [Unknown]
